FAERS Safety Report 21232825 (Version 1)
Quarter: 2022Q3

REPORT INFORMATION
  Report Type: Spontaneous
  Country: US (occurrence: US)
  Receive Date: 20220819
  Receipt Date: 20220819
  Transmission Date: 20221026
  Serious: No
  Sender: FDA-Public Use
  Company Number: US-SPECGX-T202102273

PATIENT
  Age: 72 Year
  Sex: Female
  Weight: 52 kg

DRUGS (2)
  1. MORPHINE SULFATE [Suspect]
     Active Substance: MORPHINE SULFATE
     Indication: Cancer pain
     Dosage: 100 MG PER 5 ML, TWICE A DAY
     Route: 048
     Dates: start: 202109
  2. LYRICA [Concomitant]
     Active Substance: PREGABALIN
     Indication: Product used for unknown indication
     Dosage: 60 MILLIGRAM
     Route: 065

REACTIONS (1)
  - Stomatitis [Recovering/Resolving]

NARRATIVE: CASE EVENT DATE: 20210924
